FAERS Safety Report 12376511 (Version 1)
Quarter: 2016Q2

REPORT INFORMATION
  Report Type: Spontaneous
  Country: JP (occurrence: JP)
  Receive Date: 20160517
  Receipt Date: 20160517
  Transmission Date: 20160815
  Serious: Yes (Death, Other)
  Sender: FDA-Public Use
  Company Number: JP-ASTELLAS-2016US019274

PATIENT
  Sex: Female

DRUGS (1)
  1. AMBISOME [Suspect]
     Active Substance: AMPHOTERICIN B
     Indication: MENINGITIS CANDIDA
     Dosage: UNK, UNKNOWN FREQ.
     Route: 041

REACTIONS (2)
  - Meningitis candida [Fatal]
  - Drug ineffective [Unknown]
